FAERS Safety Report 7298723-2 (Version None)
Quarter: 2011Q1

REPORT INFORMATION
  Report Type: 
  Country: None (occurrence: None)
  Receive Date: 20110217
  Receipt Date: 20110207
  Transmission Date: 20110831
  Serious: Yes (Death, Life-Threatening, Hospitalization, Other)
  Sender: FDA-Public Use
  Company Number: FR-PFIZER INC-2010153713

PATIENT
  Age: 75 Year
  Sex: Male
  Weight: 67 kg

DRUGS (58)
  1. AMIODARONE [Concomitant]
     Indication: ARRHYTHMIA
     Dosage: UNK
     Route: 042
     Dates: start: 20101025, end: 20101114
  2. VANCOMYCIN [Concomitant]
     Indication: INFECTION
     Dosage: .083 G, 1X/DAY
     Route: 042
     Dates: start: 20101107, end: 20101114
  3. PLASMION [Concomitant]
     Dosage: 500 ML, 2X/DAY
     Dates: start: 20101028, end: 20101028
  4. VITAMIN K TAB [Concomitant]
     Indication: PARENTERAL NUTRITION
     Dosage: 5 MG, 1X/DAY
     Route: 042
     Dates: start: 20101030, end: 20101030
  5. ACLOTINE [Concomitant]
     Indication: ANTITHROMBIN III DEFICIENCY
     Dosage: 2500 IU, 1X/DAY
     Route: 042
     Dates: start: 20101104, end: 20101104
  6. CALCIUM FOLINATE [Concomitant]
     Indication: MEDICAL DIET
     Dosage: 5 MG, 1X/DAY
     Route: 042
     Dates: start: 20101107, end: 20101108
  7. VOLUVEN [Concomitant]
     Dosage: 250 ML, 1X/DAY
     Route: 042
     Dates: start: 20101026, end: 20101026
  8. CLAVENTIN [Concomitant]
     Indication: INFECTION
     Dosage: 3 G, 2X/DAY
     Route: 042
     Dates: start: 20101103, end: 20101110
  9. NORADRENALINE [Concomitant]
     Dosage: UNK
     Route: 042
     Dates: start: 20101027, end: 20101029
  10. PLASMION [Concomitant]
     Indication: HYPOVOLAEMIA
     Dosage: 500 ML, 1X/DAY
     Dates: start: 20101026, end: 20101026
  11. PLASMION [Concomitant]
     Dosage: 500 ML, 1X/DAY
     Dates: start: 20101031, end: 20101031
  12. VITAMIN B-12 [Concomitant]
     Indication: SUPPLEMENTATION THERAPY
     Dosage: 1000 MG, 1X/DAY
     Route: 042
     Dates: start: 20101029, end: 20101029
  13. NIMBEX [Concomitant]
     Indication: SEDATION
     Dosage: 10 MG, 1X/DAY
     Route: 042
     Dates: start: 20101031, end: 20101031
  14. VOLUVEN [Concomitant]
     Dosage: 250 ML, 2X/DAY
     Route: 042
     Dates: start: 20101103, end: 20101103
  15. NORADRENALINE [Concomitant]
     Indication: VASOPLEGIA SYNDROME
     Dosage: UNK
     Route: 042
     Dates: start: 20101031, end: 20101114
  16. PLASMION [Concomitant]
     Dosage: 250 ML, 2X/DAY
     Dates: start: 20101107, end: 20101107
  17. ACTRAPID [Concomitant]
     Indication: HYPERGLYCAEMIA
     Dosage: 8 IU, UNK
     Route: 042
     Dates: start: 20101025, end: 20101026
  18. ACTRAPID [Concomitant]
     Dosage: 10 IU, UNK
     Route: 042
     Dates: start: 20101025, end: 20101026
  19. ACTRAPID [Concomitant]
     Dosage: 4 IU, UNK
     Route: 042
     Dates: start: 20101025, end: 20101025
  20. KAYEXALATE [Concomitant]
     Indication: HYPERKALAEMIA
     Dosage: 3 G, 1X/DAY
     Route: 048
     Dates: start: 20101027, end: 20101027
  21. PREDNISOLONE [Concomitant]
     Indication: HAEMODYNAMIC INSTABILITY
     Dosage: UNK
     Route: 042
     Dates: start: 20101028, end: 20101106
  22. ARGATROBAN [Suspect]
     Indication: HEPARIN-INDUCED THROMBOCYTOPENIA
     Dosage: 0.12 UG/KG/MIN
     Route: 042
     Dates: start: 20101105, end: 20101110
  23. HYDROCORTISONE HYDROGEN SUCCINATE [Concomitant]
     Indication: VASOPLEGIA SYNDROME
  24. NORADRENALINE [Concomitant]
     Indication: HAEMODYNAMIC INSTABILITY
     Dosage: 2.5 MG, UNK
     Dates: start: 20101026, end: 20101027
  25. KETAMINE [Concomitant]
     Indication: SEDATION
  26. GLUCOSE [Concomitant]
     Indication: POSITIVE CARDIAC INOTROPIC EFFECT
     Dosage: UNK
     Route: 042
     Dates: start: 20101025, end: 20101026
  27. INSULIN PORCINE [Concomitant]
     Indication: POSITIVE CARDIAC INOTROPIC EFFECT
     Dosage: 300 IU, UNK
     Route: 042
     Dates: start: 20101025, end: 20101026
  28. PLASMION [Concomitant]
     Dosage: 250 ML, 3X/DAY
     Dates: start: 20101108, end: 20101108
  29. EPHEDRINE [Concomitant]
     Indication: HYPOTENSION
     Dosage: 15 MG, 1X/DAY
     Route: 042
     Dates: start: 20101031, end: 20101031
  30. HEPARIN SODIUM [Concomitant]
     Indication: EXTRACORPOREAL CIRCULATION
     Dosage: 30000 IU, 1X/DAY
     Dates: start: 20101025, end: 20101025
  31. CORDARONE [Concomitant]
     Indication: ARRHYTHMIA PROPHYLAXIS
     Dosage: 25 MG, UNK
     Route: 042
     Dates: start: 20101026, end: 20101114
  32. HYDROCORTISONE HYDROGEN SUCCINATE [Concomitant]
     Indication: ADRENAL INSUFFICIENCY
  33. ALBUMIN HUMAN [Concomitant]
     Indication: HYPOALBUMINAEMIA
     Dosage: UNK
     Route: 042
     Dates: start: 20101026, end: 20101109
  34. VOLUVEN [Concomitant]
     Indication: HYPOVOLAEMIA
     Dosage: 250 ML, 2X/DAY
     Route: 042
     Dates: start: 20101026, end: 20101027
  35. OMEPRAZOLE [Concomitant]
     Indication: PROPHYLAXIS AGAINST GASTROINTESTINAL ULCER
     Dosage: 40 MG, 1X/DAY
     Route: 042
     Dates: start: 20101029, end: 20101109
  36. OMEPRAZOLE [Concomitant]
     Dosage: 40 MG, 1X/DAY
     Route: 048
     Dates: start: 20101101, end: 20101107
  37. ASPEGIC 325 [Concomitant]
     Indication: MYOCARDIAL ISCHAEMIA
  38. ESOMEPRAZOLE [Concomitant]
     Indication: PROPHYLAXIS AGAINST GASTROINTESTINAL ULCER
     Dosage: 40 MG, 1X/DAY
     Route: 042
     Dates: start: 20101031, end: 20101108
  39. LEDERFOLIN [Concomitant]
     Indication: SUPPLEMENTATION THERAPY
     Dosage: 5 MG, 1X/DAY
     Dates: start: 20101029, end: 20101113
  40. VOLUVEN [Concomitant]
     Dosage: 500 ML, 1X/DAY
     Route: 042
     Dates: start: 20101029, end: 20101029
  41. VOLUVEN [Concomitant]
     Dosage: 250 ML, 2X/DAY
     Dates: start: 20101109, end: 20101109
  42. NEXIUM [Concomitant]
     Indication: GASTRIC ULCER
     Dosage: 40 MG, 1X/DAY
     Route: 042
     Dates: start: 20101025, end: 20101028
  43. ARGATROBAN [Suspect]
     Dosage: UNK
     Route: 042
     Dates: start: 20101112, end: 20101113
  44. PROPOFOL [Concomitant]
     Indication: SEDATION
     Dosage: UNK
     Route: 042
     Dates: start: 20101026, end: 20101114
  45. ASPEGIC 325 [Concomitant]
     Indication: ANTICOAGULANT THERAPY
     Dosage: 100 MG, 1X/DAY
     Route: 048
     Dates: start: 20101031, end: 20101112
  46. PLASMION [Concomitant]
     Dosage: 500 ML, 2X/DAY
     Dates: start: 20101105, end: 20101105
  47. ACETAMINOPHEN [Concomitant]
     Indication: PAIN PROPHYLAXIS
     Dosage: UNK
     Route: 042
     Dates: start: 20101026, end: 20101102
  48. FUROSEMIDE [Concomitant]
     Dosage: 20 MG, 2X/DAY
     Dates: start: 20101030, end: 20101101
  49. VOLUVEN [Concomitant]
     Dosage: 250 ML, 2X/DAY
     Dates: start: 20101102, end: 20101102
  50. OMEPRAZOLE [Concomitant]
     Dosage: 40 MG, 1X/DAY
     Route: 048
     Dates: start: 20101109, end: 20101109
  51. REMIFENTANIL [Concomitant]
     Indication: SEDATION
     Dosage: UNK
     Route: 042
     Dates: start: 20101030, end: 20101114
  52. HYDROCORTISONE HYDROGEN SUCCINATE [Concomitant]
     Indication: INFLAMMATION
     Dosage: 8.33 MG, UNK
     Route: 042
     Dates: start: 20101109, end: 20101114
  53. VANCOMYCIN [Concomitant]
     Dosage: 1 G, 1X/DAY
     Dates: start: 20101105, end: 20101105
  54. KETAMINE [Concomitant]
     Indication: ANALGESIC THERAPY
     Dosage: 8 MG, UNK
     Route: 042
     Dates: start: 20101031, end: 20101113
  55. ADRENALINE [Concomitant]
     Indication: HAEMODYNAMIC INSTABILITY
     Dosage: UNK
     Route: 042
     Dates: start: 20101026, end: 20101107
  56. FUROSEMIDE [Concomitant]
     Indication: OLIGURIA
     Dosage: 20 MG, 2X/DAY
     Dates: start: 20101027, end: 20101028
  57. HYPNOVEL [Concomitant]
     Indication: SEDATION
     Dosage: 2 MG, 1X/DAY
     Route: 042
     Dates: start: 20101105, end: 20101105
  58. LASIX [Concomitant]
     Indication: OLIGURIA
     Dosage: 20 MG, 1X/DAY
     Route: 042
     Dates: start: 20101027, end: 20101028

REACTIONS (3)
  - MULTI-ORGAN FAILURE [None]
  - RECTAL HAEMORRHAGE [None]
  - HAEMATEMESIS [None]
